FAERS Safety Report 6192449-4 (Version None)
Quarter: 2009Q2

REPORT INFORMATION
  Report Type: 
  Country: None (occurrence: None)
  Receive Date: 20090513
  Receipt Date: 20090513
  Transmission Date: 20091009
  Serious: Yes (Life-Threatening, Hospitalization)
  Sender: FDA-Public Use
  Company Number: None

PATIENT
  Sex: Male
  Weight: 100 kg

DRUGS (1)
  1. CHANTIX [Suspect]
     Indication: SMOKING CESSATION THERAPY
     Dosage: PO  (DURATION: ABOUT 3-4 WEEKS)
     Route: 048

REACTIONS (4)
  - DEPRESSION [None]
  - IMPULSIVE BEHAVIOUR [None]
  - OVERDOSE [None]
  - SUICIDAL BEHAVIOUR [None]
